FAERS Safety Report 16766790 (Version 2)
Quarter: 2019Q4

REPORT INFORMATION
  Report Type: Spontaneous
  Country: US (occurrence: US)
  Receive Date: 20190903
  Receipt Date: 20191028
  Transmission Date: 20200122
  Serious: No
  Sender: FDA-Public Use
  Company Number: US-PFIZER INC-2019373575

PATIENT
  Age: 76 Year
  Sex: Female
  Weight: 73.48 kg

DRUGS (6)
  1. PREDNISONE. [Concomitant]
     Active Substance: PREDNISONE
     Dosage: 4 DF, DAILY (4 A DAY FOR A WEEK)
     Dates: start: 20170711
  2. PREDNISONE. [Concomitant]
     Active Substance: PREDNISONE
     Dosage: 1 DF, DAILY (1 A DAY FOR A WEEK)
     Dates: end: 20170809
  3. METHOTREXATE SODIUM. [Suspect]
     Active Substance: METHOTREXATE SODIUM
     Indication: ARTHRALGIA
     Dosage: UNK
     Dates: start: 2015, end: 2017
  4. PROLIA [Suspect]
     Active Substance: DENOSUMAB
     Indication: ARTHRALGIA
     Dosage: UNK
     Dates: start: 20170619
  5. PREDNISONE. [Concomitant]
     Active Substance: PREDNISONE
     Dosage: 3 DF, DAILY (3 A DAY FOR A WEEK)
  6. PREDNISONE. [Concomitant]
     Active Substance: PREDNISONE
     Dosage: 2 DF, DAILY (2 A DAY FOR A WEEK)

REACTIONS (2)
  - Drug intolerance [Recovered/Resolved]
  - Pain [Recovered/Resolved]

NARRATIVE: CASE EVENT DATE: 20170619
